FAERS Safety Report 9657064 (Version 1)
Quarter: 2013Q4

REPORT INFORMATION
  Report Type: Spontaneous
  Country: TH (occurrence: TH)
  Receive Date: 20131030
  Receipt Date: 20131030
  Transmission Date: 20140711
  Serious: Yes (Other)
  Sender: FDA-Public Use
  Company Number: TH-WATSON-2013-18994

PATIENT
  Age: 65 Year
  Sex: Female

DRUGS (3)
  1. AMLODIPINE (UNKNOWN) [Suspect]
     Indication: METABOLIC SYNDROME
     Dosage: UNK
     Route: 065
  2. SIMVASTATIN (UNKNOWN) [Interacting]
     Indication: METABOLIC SYNDROME
     Dosage: UNK
     Route: 065
  3. ATENOLOL [Concomitant]
     Indication: METABOLIC SYNDROME
     Dosage: UNK
     Route: 065

REACTIONS (2)
  - Stevens-Johnson syndrome [Recovered/Resolved]
  - Drug interaction [Recovered/Resolved]
